FAERS Safety Report 5894414-0 (Version None)
Quarter: 2008Q3

REPORT INFORMATION
  Report Type: 
  Country: None (occurrence: None)
  Receive Date: 20080922
  Receipt Date: 20080909
  Transmission Date: 20090109
  Serious: Yes (Hospitalization)
  Sender: FDA-Public Use
  Company Number: SPV1-2008-01965

PATIENT
  Age: 80 Year
  Sex: Female
  Weight: 45.4 kg

DRUGS (1)
  1. LIALDA [Suspect]
     Indication: COLITIS
     Dosage: 1.2G, 1X/DAY:QD
     Dates: start: 20080501

REACTIONS (4)
  - APLASTIC ANAEMIA [None]
  - EATING DISORDER [None]
  - HYPOPHAGIA [None]
  - STOMATITIS [None]
